FAERS Safety Report 16324205 (Version 1)
Quarter: 2019Q2

REPORT INFORMATION
  Report Type: Other
  Country: GB (occurrence: GB)
  Receive Date: 20190517
  Receipt Date: 20190517
  Transmission Date: 20190711
  Serious: Yes (Hospitalization, Disabling, Other)
  Sender: FDA-Public Use
  Company Number: GB-LUPIN PHARMACEUTICALS INC.-2019-01150

PATIENT
  Age: 30 Year
  Sex: Female

DRUGS (4)
  1. QUETIAPINE FUMARATE. [Suspect]
     Active Substance: QUETIAPINE FUMARATE
     Indication: ACUTE PSYCHOSIS
     Dosage: 50 MILLIGRAM, QD (25 MG TWICE DAY 1 WEEK)
     Route: 048
     Dates: start: 20190124, end: 20190130
  2. QUETIAPINE FUMARATE. [Suspect]
     Active Substance: QUETIAPINE FUMARATE
     Dosage: 50MG TWICE DAY
     Route: 048
     Dates: start: 20190131, end: 20190204
  3. RISPERIDONE. [Suspect]
     Active Substance: RISPERIDONE
     Dosage: INCREASED UP TO 6MG ONCE DAILY.
     Route: 048
     Dates: start: 20181120, end: 20181210
  4. RISPERIDONE. [Suspect]
     Active Substance: RISPERIDONE
     Indication: ACUTE PSYCHOSIS
     Dosage: 2 MILLIGRAM, QD
     Route: 048
     Dates: start: 20181120, end: 20181210

REACTIONS (1)
  - Neuroleptic malignant syndrome [Recovering/Resolving]
